FAERS Safety Report 15139346 (Version 3)
Quarter: 2018Q3

REPORT INFORMATION
  Report Type: Spontaneous
  Country: US (occurrence: US)
  Receive Date: 20180713
  Receipt Date: 20180821
  Transmission Date: 20181010
  Serious: No
  Sender: FDA-Public Use
  Company Number: US-PFIZER INC-2018282589

PATIENT
  Age: 85 Year
  Sex: Female
  Weight: 72.11 kg

DRUGS (1)
  1. IBRANCE [Suspect]
     Active Substance: PALBOCICLIB
     Indication: BREAST CANCER METASTATIC
     Dosage: 75 MG, CYCLIC (D1/DAY1?21 Q 28 DAYS)
     Route: 048
     Dates: start: 20180629

REACTIONS (7)
  - Dizziness [Unknown]
  - Red blood cell count decreased [Unknown]
  - Neoplasm progression [Unknown]
  - Tongue disorder [Unknown]
  - Dyspepsia [Unknown]
  - Gait disturbance [Unknown]
  - White blood cell count decreased [Unknown]
